FAERS Safety Report 5662938-7 (Version None)
Quarter: 2008Q1

REPORT INFORMATION
  Report Type: 
  Country: None (occurrence: None)
  Receive Date: 20080313
  Receipt Date: 20080303
  Transmission Date: 20080703
  Serious: Yes (Hospitalization)
  Sender: FDA-Public Use
  Company Number: US-MERCK-0706USA00675

PATIENT
  Age: 80 Year
  Sex: Female
  Weight: 55 kg

DRUGS (3)
  1. FOSAMAX [Suspect]
     Indication: OSTEOPOROSIS
     Route: 048
  2. FOSAMAX [Suspect]
     Route: 048
     Dates: start: 20001101
  3. PREMARIN [Concomitant]
     Indication: OSTEOPOROSIS
     Route: 048
     Dates: start: 19670101

REACTIONS (13)
  - ABSCESS [None]
  - ARTERIOSCLEROSIS [None]
  - ARTHRALGIA [None]
  - CATARACT [None]
  - CONSTIPATION [None]
  - DRUG HYPERSENSITIVITY [None]
  - IRRITABLE BOWEL SYNDROME [None]
  - OEDEMA MOUTH [None]
  - PAIN IN JAW [None]
  - PELVIC FRACTURE [None]
  - POLLAKIURIA [None]
  - RESORPTION BONE INCREASED [None]
  - TOOTH LOSS [None]
